FAERS Safety Report 8871558 (Version 2)
Quarter: 2013Q2

REPORT INFORMATION
  Report Type: Spontaneous
  Country: US (occurrence: None)
  Receive Date: 20120426
  Receipt Date: 20121031
  Transmission Date: 20140414
  Serious: Yes (Other)
  Sender: FDA-Public Use
  Company Number: PHEH2012US004779

PATIENT
  Age: 70 Year
  Sex: Female

DRUGS (26)
  1. GILENYA [Suspect]
     Indication: MULTIPLE SCLEROSIS
     Route: 048
     Dates: start: 20110901, end: 20120125
  2. CYMBALTA (DULOXETINE HYDROCHLORIDE) [Concomitant]
  3. SINGULAIR [Concomitant]
  4. EFFEXOR (VENLAFAXINE HYDROCHLORIDE) [Concomitant]
  5. ALLEGRA [Concomitant]
  6. ENALAPRIL [Concomitant]
  7. OMEPRAZOLE (OMEPRAZOLE) [Concomitant]
  8. MACRODANTIN [Concomitant]
  9. BACLOFEN (BACLOFEN) [Concomitant]
  10. TEMAZEPAM (TEMAZEPAM) [Concomitant]
  11. HYDROCODONE W/APAP (HYDROCODONE, PARACETAMOL) [Concomitant]
  12. OSCAL [Concomitant]
  13. D3 (COLECALCIFEROL) [Concomitant]
  14. PROVIGIL (MODAFINIL) [Concomitant]
  15. MULTIVIT (VITAMINS NOS) [Concomitant]
  16. GABAPENTIN (GABAPENTIN) [Concomitant]
  17. LEVOTHYROXINE SODIUM (LEVOTHYROXINE SODIUM) [Concomitant]
  18. LYRICA (PREGABALIN) [Concomitant]
  19. ZETIA (EZETIMIBE) [Concomitant]
  20. PROMETHAZINE (PROMETHAZINE) [Concomitant]
  21. PROPRANOLOL (PROPRANOLOL) [Concomitant]
  22. HYDROXYZINE HYDROCHLORIDE (HYDROXYZINE HYDROCHLORIDE) [Concomitant]
  23. FEXOFENADINE HYDROCHLORIDE (FEXOFENADINE HYDROCHLORIDE) [Concomitant]
  24. MACROBID (NITROFURANTOIN) [Concomitant]
  25. COLACE [Concomitant]
  26. TEGRETOL (CARBAMAZEPINE) UNKNOWN [Concomitant]

REACTIONS (4)
  - Macular oedema [None]
  - Multiple sclerosis relapse [None]
  - Visual acuity reduced [None]
  - Cystoid macular oedema [None]
